FAERS Safety Report 24340219 (Version 1)
Quarter: 2024Q3

REPORT INFORMATION
  Report Type: Spontaneous
  Country: US (occurrence: None)
  Receive Date: 20240919
  Receipt Date: 20240919
  Transmission Date: 20241017
  Serious: Yes (Other)
  Sender: Public
  Company Number: None

PATIENT
  Sex: 0

DRUGS (1)
  1. AXICABTAGENE CILOLEUCEL [Suspect]
     Active Substance: AXICABTAGENE CILOLEUCEL

REACTIONS (4)
  - Immune effector cell-associated HLH-like syndrome [None]
  - Serum ferritin increased [None]
  - Fatigue [None]
  - Full blood count abnormal [None]

NARRATIVE: CASE EVENT DATE: 20240715
